FAERS Safety Report 9712847 (Version 1)
Quarter: 2013Q4

REPORT INFORMATION
  Report Type: Report from Study
  Country: JP (occurrence: JP)
  Receive Date: 20131126
  Receipt Date: 20131126
  Transmission Date: 20140711
  Serious: Yes (Death, Hospitalization)
  Sender: FDA-Public Use
  Company Number: JP-JNJFOC-20131115495

PATIENT
  Age: 77 Year
  Sex: Male

DRUGS (16)
  1. SIMPONI [Suspect]
     Indication: RHEUMATOID ARTHRITIS
     Route: 058
     Dates: start: 20121012, end: 20121012
  2. SIMPONI [Suspect]
     Indication: RHEUMATOID ARTHRITIS
     Route: 058
     Dates: start: 20121214, end: 20121214
  3. SIMPONI [Suspect]
     Indication: RHEUMATOID ARTHRITIS
     Route: 058
     Dates: start: 20130111, end: 20130111
  4. HUMIRA [Suspect]
     Indication: RHEUMATOID ARTHRITIS
     Route: 058
  5. HUMIRA [Suspect]
     Indication: RHEUMATOID ARTHRITIS
     Route: 058
     Dates: start: 20130208
  6. PREDONINE [Concomitant]
     Indication: RHEUMATOID ARTHRITIS
     Route: 048
     Dates: end: 20120914
  7. PREDONINE [Concomitant]
     Indication: RHEUMATOID ARTHRITIS
     Route: 048
     Dates: start: 20120915, end: 20120927
  8. PREDONINE [Concomitant]
     Indication: RHEUMATOID ARTHRITIS
     Route: 048
     Dates: start: 20120928
  9. CALONAL [Concomitant]
     Route: 065
     Dates: start: 20120915
  10. LASIX [Concomitant]
     Route: 065
  11. GASTER [Concomitant]
     Indication: PROPHYLAXIS
     Route: 065
  12. ZYLORIC [Concomitant]
     Route: 048
  13. COMELIAN [Concomitant]
     Route: 048
  14. ALESION [Concomitant]
     Route: 065
  15. RUEFRIEN [Concomitant]
     Indication: PROPHYLAXIS
     Route: 048
  16. PURSENNID [Concomitant]
     Route: 048

REACTIONS (2)
  - Cardiac failure acute [Fatal]
  - Drug ineffective [Unknown]
